FAERS Safety Report 4698288-5 (Version None)
Quarter: 2005Q2

REPORT INFORMATION
  Report Type: 
  Country: None (occurrence: None)
  Receive Date: 20050621
  Receipt Date: 20050607
  Transmission Date: 20051028
  Serious: Yes (Life-Threatening, Hospitalization)
  Sender: FDA-Public Use
  Company Number: WAES 0506NLD00013

PATIENT
  Age: 56 Year
  Sex: Female

DRUGS (5)
  1. TAB ETORICOXIB [Suspect]
     Indication: RHEUMATOID ARTHRITIS
     Dosage: 90 MG/DAILY PO
     Route: 048
     Dates: start: 20041208, end: 20050510
  2. VIOXX [Suspect]
     Indication: RHEUMATOID ARTHRITIS
     Dosage: 25 MG/DAILY PO
     Route: 048
     Dates: start: 20040401, end: 20041001
  3. FORMOTEROL FUMARATE [Concomitant]
  4. METHOTREXATE [Concomitant]
  5. PILOCARPINE [Concomitant]

REACTIONS (2)
  - ANGINA PECTORIS [None]
  - MYOCARDIAL INFARCTION [None]
